FAERS Safety Report 9094390 (Version 1)
Quarter: 2013Q1

REPORT INFORMATION
  Report Type: Report from Study
  Country: US (occurrence: US)
  Receive Date: 20130131
  Receipt Date: 20130131
  Transmission Date: 20140127
  Serious: No
  Sender: FDA-Public Use
  Company Number: US-ABBOTT-12P-163-1006904-00

PATIENT
  Age: 11 None
  Sex: Female
  Weight: 47.67 kg

DRUGS (21)
  1. HUMIRA [Suspect]
  2. PEPCID [Concomitant]
     Indication: CROHN^S DISEASE
  3. VITAMIN D [Concomitant]
     Indication: VITAMIN SUPPLEMENTATION
  4. FERROUS SULFATE [Concomitant]
     Indication: ANAEMIA
  5. FISH OIL [Concomitant]
     Indication: SUPPLEMENTATION THERAPY
  6. ZYRTEC [Concomitant]
     Indication: HYPERSENSITIVITY
  7. BENADRYL [Concomitant]
     Indication: HYPERSENSITIVITY
  8. MOTRIN [Concomitant]
     Indication: INFLAMMATION
  9. MOTRIN [Concomitant]
     Indication: ARTHRITIS
  10. MOTRIN [Concomitant]
     Indication: PYREXIA
  11. MOTRIN [Concomitant]
     Indication: PAIN
  12. TYLENOL [Concomitant]
     Indication: INFLAMMATION
  13. TYLENOL [Concomitant]
     Indication: ARTHRITIS
  14. TYLENOL [Concomitant]
     Indication: PYREXIA
  15. TYLENOL [Concomitant]
     Indication: PAIN
  16. LACTOBACCILLUS [Concomitant]
     Indication: SUPPLEMENTATION THERAPY
  17. LACTOSE [Concomitant]
     Indication: LACTOSE INTOLERANCE
  18. CALCIUM [Concomitant]
     Indication: SUPPLEMENTATION THERAPY
  19. MULTIVITAMIN [Concomitant]
     Indication: VITAMIN SUPPLEMENTATION
  20. CRANBERRY EXTRACT [Concomitant]
     Indication: SUPPLEMENTATION THERAPY
  21. GASTRO SUPPORT [Concomitant]
     Indication: SUPPLEMENTATION THERAPY

REACTIONS (11)
  - Vasculitis [Not Recovered/Not Resolved]
  - Pharyngitis streptococcal [Recovered/Resolved]
  - Cough [Recovered/Resolved]
  - Rash [Not Recovered/Not Resolved]
  - Streptococcal infection [Not Recovered/Not Resolved]
  - Vasculitis [Not Recovered/Not Resolved]
  - Conjunctivitis [Not Recovered/Not Resolved]
  - Candida infection [Not Recovered/Not Resolved]
  - Pharyngeal erythema [Unknown]
  - Pharyngeal exudate [Unknown]
  - Pharyngitis streptococcal [Not Recovered/Not Resolved]
